FAERS Safety Report 16581124 (Version 1)
Quarter: 2019Q3

REPORT INFORMATION
  Report Type: Spontaneous
  Country: CN (occurrence: CN)
  Receive Date: 20190716
  Receipt Date: 20190716
  Transmission Date: 20191004
  Serious: Yes (Other)
  Sender: FDA-Public Use
  Company Number: CN-ELI_LILLY_AND_COMPANY-CN201907002919

PATIENT
  Age: 65 Year
  Sex: Female
  Weight: 55 kg

DRUGS (2)
  1. HUMULIN R [Suspect]
     Active Substance: INSULIN HUMAN
     Indication: TYPE 2 DIABETES MELLITUS
     Dosage: 16 U, EACH MORNING
     Route: 058
     Dates: start: 2009
  2. HUMULIN R [Suspect]
     Active Substance: INSULIN HUMAN
     Dosage: 12 U, EACH EVENING
     Route: 058
     Dates: start: 2009

REACTIONS (9)
  - Fatigue [Unknown]
  - Neuropathy peripheral [Unknown]
  - Gait disturbance [Unknown]
  - Dry mouth [Unknown]
  - Pollakiuria [Unknown]
  - Renal disorder [Unknown]
  - Eye disorder [Unknown]
  - Pruritus [Unknown]
  - Ocular discomfort [Unknown]

NARRATIVE: CASE EVENT DATE: 2017
